FAERS Safety Report 13459092 (Version 2)
Quarter: 2017Q2

REPORT INFORMATION
  Report Type: Spontaneous
  Country: FR (occurrence: FR)
  Receive Date: 20170419
  Receipt Date: 20170424
  Transmission Date: 20170830
  Serious: Yes (Other)
  Sender: FDA-Public Use
  Company Number: FR-AUROBINDO-AUR-APL-2017-32693

PATIENT
  Age: 59 Year
  Sex: Male

DRUGS (6)
  1. PANTOPRAZOLE SODIUM. [Suspect]
     Active Substance: PANTOPRAZOLE SODIUM
     Indication: PRODUCT USED FOR UNKNOWN INDICATION
     Dosage: 1 DF, ONCE A DAY
     Route: 048
     Dates: start: 20170222
  2. OFLOXACINE [Suspect]
     Active Substance: OFLOXACIN
     Indication: MENINGIOMA
     Dosage: 1 DF, 3 TIMES A DAY
     Route: 042
     Dates: start: 20170221, end: 20170227
  3. LOVENOX [Suspect]
     Active Substance: ENOXAPARIN SODIUM
     Indication: PRODUCT USED FOR UNKNOWN INDICATION
     Dosage: 4000 IU, ONCE A DAY
     Route: 058
     Dates: start: 20170223
  4. CEFOTAXIME [Suspect]
     Active Substance: CEFOTAXIME SODIUM
     Indication: MENINGIOMA
     Dosage: UNK
     Route: 065
     Dates: start: 20170221
  5. OFLOXACINE [Suspect]
     Active Substance: OFLOXACIN
     Indication: MENINGIOMA
     Dosage: 1 DF, 3 TIMES A DAY
     Route: 048
     Dates: start: 20170227, end: 20170320
  6. ZOCOR [Concomitant]
     Active Substance: SIMVASTATIN
     Indication: PRODUCT USED FOR UNKNOWN INDICATION
     Dosage: 10 MG, UNK
     Route: 065

REACTIONS (3)
  - Rash maculo-papular [Recovered/Resolved]
  - Pyrexia [Not Recovered/Not Resolved]
  - Eosinophilia [Not Recovered/Not Resolved]

NARRATIVE: CASE EVENT DATE: 20170321
